FAERS Safety Report 11111830 (Version 2)
Quarter: 2015Q2

REPORT INFORMATION
  Report Type: Report from Study
  Country: CA (occurrence: CA)
  Receive Date: 20150514
  Receipt Date: 20150612
  Transmission Date: 20150821
  Serious: Yes (Other)
  Sender: FDA-Public Use
  Company Number: CA-ABBVIE-15K-028-1388469-00

PATIENT
  Sex: Female
  Weight: 58 kg

DRUGS (1)
  1. HUMIRA [Suspect]
     Active Substance: ADALIMUMAB
     Indication: ANKYLOSING SPONDYLITIS
     Dosage: 20 (UNIT AND FREQUENCY NOT SPECIFIED)
     Route: 058
     Dates: start: 20121207

REACTIONS (5)
  - Disturbance in attention [Not Recovered/Not Resolved]
  - Irritable bowel syndrome [Recovered/Resolved with Sequelae]
  - Fibromyalgia [Unknown]
  - Amnesia [Not Recovered/Not Resolved]
  - Hypersomnia [Not Recovered/Not Resolved]
